FAERS Safety Report 5042979-3 (Version None)
Quarter: 2006Q2

REPORT INFORMATION
  Report Type: 
  Country: None (occurrence: None)
  Receive Date: 20060627
  Receipt Date: 20060614
  Transmission Date: 20061013
  Serious: Yes (Hospitalization)
  Sender: FDA-Public Use
  Company Number: 2006BH011015

PATIENT
  Age: 53 Year
  Sex: Male
  Weight: 84.8 kg

DRUGS (34)
  1. EXTRANEAL [Suspect]
     Indication: RENAL FAILURE CHRONIC
     Dosage: 2000 ML EVERY DAY IP
     Route: 033
     Dates: start: 20040614
  2. DIANEAL-N PD-4 1.5 [Concomitant]
  3. DIANEAL-N PD-4 2.5 [Concomitant]
  4. SARPOGRELATE HYDROCHLORIDE [Concomitant]
  5. INSULIN [Concomitant]
  6. FERROMIA [Concomitant]
  7. ETHYL ICOSAPENTATE [Concomitant]
  8. FOLIC ACID [Concomitant]
  9. MECOBALAMIN [Concomitant]
  10. CLONAZEPAM [Concomitant]
  11. CLOPATADINE HYDROCHLORIDE [Concomitant]
  12. HYDROXYZINE PAMOATE [Concomitant]
  13. CEFPODOXIME PROXETIL [Concomitant]
  14. PARIET [Concomitant]
  15. POLAPREZINC [Concomitant]
  16. DICLOFENAC SODIUM [Concomitant]
  17. SENNOSIDE [Concomitant]
  18. PERINDOPRIL ERBUMINE [Concomitant]
  19. LEVOCABASTINE HYDROCHLORIDE [Concomitant]
  20. DIPHENHYDRAMINE HCL [Concomitant]
  21. INSULIN [Concomitant]
  22. LOXOPROFEN SODIUM [Concomitant]
  23. ZOLPIDEM TARTRATE [Concomitant]
  24. PRECIPITATED CALCIUM CARBONATE [Concomitant]
  25. FUROSEMIDE [Concomitant]
  26. CILNIDIPINE [Concomitant]
  27. TRANDOLAPRIL [Concomitant]
  28. DOXAZOSIN MESYLATE [Concomitant]
  29. VALSARTAN [Concomitant]
  30. ALLOPURINOL [Concomitant]
  31. AMLODIPINE BESYLATE [Concomitant]
  32. CALCITRIOL [Concomitant]
  33. ASPIRIN [Concomitant]
  34. PRAVASTATIN SODIUM [Concomitant]

REACTIONS (4)
  - ANAEMIA [None]
  - ATRIAL THROMBOSIS [None]
  - DIABETIC COMPLICATION [None]
  - VENA CAVA EMBOLISM [None]
